FAERS Safety Report 19508180 (Version 1)
Quarter: 2021Q3

REPORT INFORMATION
  Report Type: Spontaneous
  Country: US (occurrence: US)
  Receive Date: 20210708
  Receipt Date: 20210708
  Transmission Date: 20211014
  Serious: Yes (Hospitalization)
  Sender: FDA-Public Use
  Company Number: US-PFIZER INC-2021782378

PATIENT
  Age: 71 Year
  Sex: Male

DRUGS (2)
  1. VFEND [Suspect]
     Active Substance: VORICONAZOLE
     Dosage: 100 MG, 2X/DAY (2 TABS OF 50 MG) FOR 30 DAYS
     Route: 048
  2. VFEND [Suspect]
     Active Substance: VORICONAZOLE
     Dosage: 200 MG, 2X/DAY FOR 30 DAYS
     Route: 048

REACTIONS (2)
  - Leukaemia [Unknown]
  - COVID-19 [Unknown]
